FAERS Safety Report 20607194 (Version 1)
Quarter: 2022Q1

REPORT INFORMATION
  Report Type: Spontaneous
  Country: GB (occurrence: GB)
  Receive Date: 20220317
  Receipt Date: 20220317
  Transmission Date: 20220423
  Serious: Yes (Other)
  Sender: FDA-Public Use
  Company Number: GB-NOVARTISPH-NVSC2022GB059555

PATIENT
  Sex: Female

DRUGS (2)
  1. CLARITHROMYCIN [Suspect]
     Active Substance: CLARITHROMYCIN
     Indication: Product used for unknown indication
     Dosage: UNK
     Route: 065
  2. MIRTAZAPINE [Concomitant]
     Active Substance: MIRTAZAPINE
     Indication: Product used for unknown indication
     Route: 065

REACTIONS (10)
  - Sleep disorder [Recovering/Resolving]
  - Feeling abnormal [Recovering/Resolving]
  - Fear [Recovering/Resolving]
  - Fear of death [Recovering/Resolving]
  - Self-injurious ideation [Recovering/Resolving]
  - Feeling hot [Recovering/Resolving]
  - Hallucination [Recovering/Resolving]
  - Insomnia [Recovering/Resolving]
  - Paraesthesia [Recovering/Resolving]
  - Anxiety [Recovering/Resolving]

NARRATIVE: CASE EVENT DATE: 20220311
